FAERS Safety Report 14107039 (Version 1)
Quarter: 2017Q4

REPORT INFORMATION
  Report Type: Other
  Country: US (occurrence: US)
  Receive Date: 20171019
  Receipt Date: 20171019
  Transmission Date: 20180321
  Serious: No
  Sender: FDA-Public Use
  Company Number: US-LANNETT COMPANY, INC.-US-2017LAN000685

PATIENT

DRUGS (1)
  1. LEVOTHYROXINE SODIUM. [Suspect]
     Active Substance: LEVOTHYROXINE SODIUM
     Indication: THYROID DISORDER
     Dosage: 0.100 MG, UNK

REACTIONS (13)
  - Dysarthria [Unknown]
  - Fatigue [Unknown]
  - Joint swelling [Unknown]
  - Weight decreased [Unknown]
  - Back pain [Unknown]
  - Hyperhidrosis [Unknown]
  - Amnesia [Unknown]
  - Peripheral swelling [Unknown]
  - Tremor [Unknown]
  - Chills [Unknown]
  - Muscle spasms [Unknown]
  - Headache [Unknown]
  - Dry mouth [Unknown]

NARRATIVE: CASE EVENT DATE: 2017
